FAERS Safety Report 5164683-3 (Version None)
Quarter: 2006Q4

REPORT INFORMATION
  Report Type: 
  Country: None (occurrence: None)
  Receive Date: 20061205
  Receipt Date: 20061128
  Transmission Date: 20070319
  Serious: Yes (Other)
  Sender: FDA-Public Use
  Company Number: RU-GLAXOSMITHKLINE-B0448477A

PATIENT
  Sex: Female

DRUGS (1)
  1. PANADOL BABY + INFANT SUSPENSION [Suspect]
     Dosage: 1TSP SINGLE DOSE
     Route: 048

REACTIONS (1)
  - ANGIONEUROTIC OEDEMA [None]
